FAERS Safety Report 8382911 (Version 3)
Quarter: 2014Q1

REPORT INFORMATION
  Report Type: Spontaneous
  Country: US (occurrence: US)
  Receive Date: 20120201
  Receipt Date: 20140106
  Transmission Date: 20141002
  Serious: Yes (Death, Hospitalization)
  Sender: FDA-Public Use
  Company Number: US-B.I. PHARMACEUTICALS,INC./RIDGEFIELD-2012-BP-01921BP

PATIENT
  Sex: Female
  Weight: 61.23 kg

DRUGS (16)
  1. PRADAXA [Suspect]
     Indication: ATRIAL FIBRILLATION
     Route: 048
     Dates: start: 20110720, end: 20111113
  2. SYNTHROID [Concomitant]
  3. PRILOSEC [Concomitant]
     Dosage: 20 MG
     Route: 048
  4. ATIVAN [Concomitant]
  5. NITROSTAT [Concomitant]
     Route: 060
  6. LASIX [Concomitant]
     Dosage: 20 MG
     Route: 048
  7. ZOCOR [Concomitant]
  8. ISOPHANE INSULIN [Concomitant]
  9. LISINOPRIL [Concomitant]
     Dosage: 10 MG
     Route: 048
  10. PREDNISONE [Concomitant]
     Indication: BACK PAIN
     Dosage: 10 MG
     Route: 048
  11. PREDNISONE [Concomitant]
     Indication: OSTEOARTHRITIS
  12. POTASSIUM CHLORIDE [Concomitant]
     Dosage: 20 MEQ
  13. ZOLOFT [Concomitant]
     Dosage: 100 MG
     Route: 048
  14. IMDUR [Concomitant]
     Dosage: 60 MG
     Route: 048
  15. VICODIN [Concomitant]
     Indication: PAIN
     Route: 048
  16. METOPROLOL [Concomitant]
     Dosage: 25 MG
     Route: 048

REACTIONS (11)
  - Gastrointestinal haemorrhage [Fatal]
  - Multi-organ failure [Fatal]
  - Genital haemorrhage [Unknown]
  - Anaemia [Unknown]
  - Coagulopathy [Unknown]
  - Thrombocytopenia [Unknown]
  - Hypovolaemic shock [Unknown]
  - Sepsis [Unknown]
  - Renal failure [Unknown]
  - Contusion [Unknown]
  - Muscle haemorrhage [Unknown]
